FAERS Safety Report 7730042-X (Version None)
Quarter: 2011Q3

REPORT INFORMATION
  Report Type: 
  Country: None (occurrence: None)
  Receive Date: 20110906
  Receipt Date: 20110825
  Transmission Date: 20111222
  Serious: Yes (Congenital Anomaly)
  Sender: FDA-Public Use
  Company Number: DE-TEVA-298006GER

PATIENT
  Weight: 0.35 kg

DRUGS (2)
  1. FOLIC ACID [Concomitant]
     Route: 064
  2. CITALOPRAM [Suspect]
     Dosage: 30 [MG/D ]/ GW 0-5: 30MG/D; SINCE GW 6: 20MG/D
     Route: 064
     Dates: start: 20100101, end: 20100821

REACTIONS (1)
  - SPINA BIFIDA [None]
